FAERS Safety Report 4587429-6 (Version None)
Quarter: 2005Q1

REPORT INFORMATION
  Report Type: 
  Country: None (occurrence: None)
  Receive Date: 20050215
  Receipt Date: 20050114
  Transmission Date: 20050727
  Serious: Yes (Death)
  Sender: FDA-Public Use
  Company Number: 2005013389

PATIENT
  Sex: Female

DRUGS (1)
  1. VALDECOXIB [Suspect]
     Indication: RHEUMATOID ARTHRITIS
     Dosage: 20 MG (10 MG, 2 IN 1 D), ORAL
     Route: 048
     Dates: start: 20031201, end: 20041201

REACTIONS (3)
  - MYOCARDIAL INFARCTION [None]
  - SUDDEN DEATH [None]
  - TREATMENT NONCOMPLIANCE [None]
